FAERS Safety Report 25920438 (Version 1)
Quarter: 2025Q4

REPORT INFORMATION
  Report Type: Spontaneous
  Country: EU (occurrence: EU)
  Receive Date: 20251014
  Receipt Date: 20251014
  Transmission Date: 20260117
  Serious: Yes (Other)
  Sender: MYLAN
  Company Number: EU-MYLANLABS-2025M1086991

PATIENT
  Age: 43 Year
  Sex: Female

DRUGS (24)
  1. ZOLEDRONIC ACID [Suspect]
     Active Substance: ZOLEDRONIC ACID
     Indication: Glioblastoma
     Dosage: UNK
  2. ZOLEDRONIC ACID [Suspect]
     Active Substance: ZOLEDRONIC ACID
     Indication: Metastases to spine
     Dosage: UNK
     Route: 065
  3. ZOLEDRONIC ACID [Suspect]
     Active Substance: ZOLEDRONIC ACID
     Indication: Metastases to liver
     Dosage: UNK
     Route: 065
  4. ZOLEDRONIC ACID [Suspect]
     Active Substance: ZOLEDRONIC ACID
     Dosage: UNK
  5. IRINOTECAN [Suspect]
     Active Substance: IRINOTECAN
     Indication: Glioblastoma
     Dosage: UNK, CYCLE (SCHEDULED FOR 7 CYCLES)
  6. IRINOTECAN [Suspect]
     Active Substance: IRINOTECAN
     Dosage: UNK, CYCLE (SCHEDULED FOR 7 CYCLES)
     Route: 065
  7. IRINOTECAN [Suspect]
     Active Substance: IRINOTECAN
     Dosage: UNK, CYCLE (SCHEDULED FOR 7 CYCLES)
     Route: 065
  8. IRINOTECAN [Suspect]
     Active Substance: IRINOTECAN
     Dosage: UNK, CYCLE (SCHEDULED FOR 7 CYCLES)
  9. BEVACIZUMAB [Suspect]
     Active Substance: BEVACIZUMAB
     Indication: Glioblastoma
     Dosage: UNK, CYCLE (SCHEDULED FOR 7 CYCLES)
  10. BEVACIZUMAB [Suspect]
     Active Substance: BEVACIZUMAB
     Dosage: UNK, CYCLE (SCHEDULED FOR 7 CYCLES)
  11. BEVACIZUMAB [Suspect]
     Active Substance: BEVACIZUMAB
     Dosage: UNK, CYCLE (SCHEDULED FOR 7 CYCLES)
     Route: 065
  12. BEVACIZUMAB [Suspect]
     Active Substance: BEVACIZUMAB
     Dosage: UNK, CYCLE (SCHEDULED FOR 7 CYCLES)
     Route: 065
  13. BEVACIZUMAB [Suspect]
     Active Substance: BEVACIZUMAB
     Dosage: UNK, MONOTHERAPY
  14. BEVACIZUMAB [Suspect]
     Active Substance: BEVACIZUMAB
     Dosage: UNK, MONOTHERAPY
  15. BEVACIZUMAB [Suspect]
     Active Substance: BEVACIZUMAB
     Dosage: UNK, MONOTHERAPY
     Route: 065
  16. BEVACIZUMAB [Suspect]
     Active Substance: BEVACIZUMAB
     Dosage: UNK, MONOTHERAPY
     Route: 065
  17. FOTEMUSTINE [Suspect]
     Active Substance: FOTEMUSTINE
     Indication: Glioblastoma
     Dosage: UNK, THIRD-LINE TREATMENT
  18. FOTEMUSTINE [Suspect]
     Active Substance: FOTEMUSTINE
     Indication: Metastases to spine
     Dosage: UNK, THIRD-LINE TREATMENT
     Route: 065
  19. FOTEMUSTINE [Suspect]
     Active Substance: FOTEMUSTINE
     Indication: Metastases to liver
     Dosage: UNK, THIRD-LINE TREATMENT
     Route: 065
  20. FOTEMUSTINE [Suspect]
     Active Substance: FOTEMUSTINE
     Dosage: UNK, THIRD-LINE TREATMENT
  21. CABERGOLINE [Concomitant]
     Active Substance: CABERGOLINE
     Indication: Hyperprolactinaemia
     Dosage: UNK
  22. CABERGOLINE [Concomitant]
     Active Substance: CABERGOLINE
     Dosage: UNK
     Route: 065
  23. CABERGOLINE [Concomitant]
     Active Substance: CABERGOLINE
     Dosage: UNK
     Route: 065
  24. CABERGOLINE [Concomitant]
     Active Substance: CABERGOLINE
     Dosage: UNK

REACTIONS (2)
  - Haematotoxicity [Unknown]
  - Hypersensitivity [Unknown]
